FAERS Safety Report 18318573 (Version 2)
Quarter: 2020Q4

REPORT INFORMATION
  Report Type: Report from Study
  Country: GB (occurrence: GB)
  Receive Date: 20200928
  Receipt Date: 20201002
  Transmission Date: 20210113
  Serious: Yes (Other)
  Sender: FDA-Public Use
  Company Number: GB-MYLANLABS-2020M1081772

PATIENT
  Age: 43 Year
  Sex: Male

DRUGS (3)
  1. TRAMADOL. [Suspect]
     Active Substance: TRAMADOL
     Indication: PAIN
     Dosage: 2 DF, QD UNKNOWN (MORNING AND NIGHT)
     Route: 065
  2. BENEPALI [Suspect]
     Active Substance: ETANERCEPT
     Indication: PSORIATIC ARTHROPATHY
     Dosage: 50 MILLIGRAM, QW
     Route: 058
  3. IMRALDI [Suspect]
     Active Substance: ADALIMUMAB
     Indication: PRODUCT USED FOR UNKNOWN INDICATION
     Dosage: UNKNOWN
     Route: 065

REACTIONS (22)
  - Pain in extremity [Unknown]
  - Hypoaesthesia [Unknown]
  - Injection site pain [Unknown]
  - Abdominal pain [Unknown]
  - Fine motor skill dysfunction [Unknown]
  - Wrong technique in product usage process [Unknown]
  - Oropharyngeal pain [Unknown]
  - Psoriatic arthropathy [Unknown]
  - Diarrhoea [Unknown]
  - Restlessness [Unknown]
  - Coeliac disease [Unknown]
  - Injection site mass [Unknown]
  - Dizziness [Unknown]
  - Drug ineffective [Unknown]
  - Stress [Unknown]
  - Neuropathy peripheral [Unknown]
  - Mobility decreased [Unknown]
  - Taste disorder [Unknown]
  - Depressed mood [Unknown]
  - Hand deformity [Unknown]
  - Dry mouth [Unknown]
  - Confusional state [Unknown]
